FAERS Safety Report 6532729-3 (Version None)
Quarter: 2010Q1

REPORT INFORMATION
  Report Type: 
  Country: None (occurrence: None)
  Receive Date: 20100111
  Receipt Date: 20091209
  Transmission Date: 20100710
  Serious: No
  Sender: FDA-Public Use
  Company Number: US-BAYER-200942490NA

PATIENT
  Age: 70 Year
  Sex: Male
  Weight: 77 kg

DRUGS (3)
  1. ULTRAVIST 370 [Suspect]
     Indication: ANGIOGRAM
     Dosage: TOTAL DAILY DOSE: 160 ML  UNIT DOSE: 100 ML
     Route: 042
     Dates: start: 20091209, end: 20091209
  2. BENADRYL [Concomitant]
     Indication: PREMEDICATION
     Dosage: 1 HOUR PRIOR TO CONTRAST
     Dates: start: 20091209
  3. PREDNISONE [Concomitant]
     Dosage: 13 HOURS, 7 HOURS, AND 1 HOUR PRIOR TO CONTRAST
     Dates: start: 20091209

REACTIONS (2)
  - ERYTHEMA [None]
  - PRURITUS [None]
